FAERS Safety Report 8222496-X (Version None)
Quarter: 2012Q1

REPORT INFORMATION
  Report Type: 
  Country: None (occurrence: None)
  Receive Date: 20120320
  Receipt Date: 20120316
  Transmission Date: 20120608
  Serious: Yes (Other)
  Sender: FDA-Public Use
  Company Number: PHHY2011JP47797

PATIENT
  Sex: Male
  Weight: 63 kg

DRUGS (11)
  1. AFINITOR [Suspect]
     Dosage: 10 MG, DAILY
     Route: 048
     Dates: start: 20110815
  2. AZUNOL [Concomitant]
     Indication: PROPHYLAXIS
     Dosage: 5 ML
     Route: 048
     Dates: start: 20110310
  3. FERROUS SULFATE TAB [Concomitant]
     Indication: PROPHYLAXIS
     Dosage: 105 MG,
     Route: 048
     Dates: start: 20110526
  4. AFINITOR [Suspect]
     Dosage: 5 MG, DAILY
     Route: 048
     Dates: start: 20110421, end: 20110512
  5. AFINITOR [Suspect]
     Dosage: 5 MG, DAILY
     Route: 048
     Dates: start: 20110527, end: 20110608
  6. AFINITOR [Suspect]
     Dosage: 5 MG, DAILY
     Route: 048
     Dates: start: 20110722, end: 20110814
  7. LOSARTAN POTASSIUM [Concomitant]
     Indication: HYPERTENSION
     Dosage: 25 MG
     Route: 048
  8. AFINITOR [Suspect]
     Indication: METASTATIC RENAL CELL CARCINOMA
     Dosage: 10 MG, DAILY
     Route: 048
     Dates: start: 20110314, end: 20110407
  9. AZUNOL [Concomitant]
     Dosage: 5 ML,
     Route: 048
  10. AFINITOR [Suspect]
     Dosage: 5 MG, DAILY
     Route: 048
     Dates: start: 20110624, end: 20110714
  11. LOSARTAN POTASSIUM [Concomitant]
     Dosage: 25 MG,
     Dates: end: 20110420

REACTIONS (5)
  - C-REACTIVE PROTEIN INCREASED [None]
  - ANAEMIA [None]
  - BONE MARROW FAILURE [None]
  - HAEMOGLOBIN DECREASED [None]
  - LYMPHOCYTE COUNT DECREASED [None]
